FAERS Safety Report 6909580-5 (Version None)
Quarter: 2010Q3

REPORT INFORMATION
  Report Type: 
  Country: None (occurrence: None)
  Receive Date: 20100805
  Receipt Date: 20100728
  Transmission Date: 20110219
  Serious: Yes (Hospitalization)
  Sender: FDA-Public Use
  Company Number: CA-ABBOTT-10P-028-0660594-00

PATIENT
  Sex: Female
  Weight: 102.15 kg

DRUGS (1)
  1. HUMIRA [Suspect]
     Indication: CROHN'S DISEASE
     Route: 058
     Dates: start: 20100412

REACTIONS (2)
  - ABDOMINAL PAIN [None]
  - HOSPITALISATION [None]
